FAERS Safety Report 14591889 (Version 2)
Quarter: 2018Q1

REPORT INFORMATION
  Report Type: Report from Study
  Country: US (occurrence: US)
  Receive Date: 20180302
  Receipt Date: 20180302
  Transmission Date: 20180509
  Serious: Yes (Hospitalization)
  Sender: FDA-Public Use
  Company Number: PHHO2017US007916

PATIENT

DRUGS (13)
  1. INC424A [Suspect]
     Active Substance: RUXOLITINIB
     Indication: B PRECURSOR TYPE ACUTE LEUKAEMIA
     Dosage: 30 MG, BID (DAYS 1-14)
     Route: 048
     Dates: start: 20170412
  2. DEXAMETHASONE. [Suspect]
     Active Substance: DEXAMETHASONE
     Dosage: 4 MG, BID (DAYS 15-20)
     Route: 048
     Dates: start: 20170426
  3. VINCRISTINE [Suspect]
     Active Substance: VINCRISTINE
     Indication: ACUTE LYMPHOCYTIC LEUKAEMIA
     Dosage: 1.2 MG, (DAYS 1, 8, 15)
     Route: 037
     Dates: start: 20170412, end: 20170426
  4. CYTARABINE. [Suspect]
     Active Substance: CYTARABINE
     Indication: ACUTE LYMPHOCYTIC LEUKAEMIA
     Dosage: 56 MG, QD
     Route: 058
     Dates: start: 20170510, end: 20170520
  5. DEXAMETHASONE. [Suspect]
     Active Substance: DEXAMETHASONE
     Indication: ACUTE LYMPHOCYTIC LEUKAEMIA
     Dosage: 3.8 MG, BID (DAYS 1-7-15-21)
     Route: 048
     Dates: start: 20170412, end: 20170503
  6. METHOTREXATE. [Suspect]
     Active Substance: METHOTREXATE
     Dosage: 12 MG, DAYS 29,36
     Route: 037
     Dates: start: 20170510, end: 20170517
  7. METHOTREXATE. [Suspect]
     Active Substance: METHOTREXATE
     Indication: B PRECURSOR TYPE ACUTE LEUKAEMIA
     Dosage: 12 MG, ONCE/SINGLE (DAY 1)
     Route: 037
     Dates: start: 20170412, end: 20170412
  8. THIOGUANINE [Suspect]
     Active Substance: THIOGUANINE
     Indication: ACUTE LYMPHOCYTIC LEUKAEMIA
     Dosage: 40 MG WED - SUN, 60 MG MON- TUE
     Route: 048
     Dates: start: 20170510, end: 20170523
  9. CYCLOPHOSPHAMIDE. [Suspect]
     Active Substance: CYCLOPHOSPHAMIDE
     Indication: ACUTE LYMPHOCYTIC LEUKAEMIA
     Dosage: 250 MG, SINGLE
     Route: 042
     Dates: start: 20170510, end: 20170510
  10. PEGASPARGASE [Suspect]
     Active Substance: PEGASPARGASE
     Indication: ACUTE LYMPHOCYTIC LEUKAEMIA
     Dosage: 1975 IU, (DAY 4)
     Route: 042
     Dates: start: 20170415, end: 20170415
  11. DOXORUBICIN [Suspect]
     Active Substance: DOXORUBICIN
     Indication: ACUTE LYMPHOCYTIC LEUKAEMIA
     Dosage: 19 MG, (DAYS 1, 8, 15)
     Route: 042
     Dates: start: 20170412, end: 20170420
  12. VINCRISTINE [Suspect]
     Active Substance: VINCRISTINE
     Dosage: 1.1 MG, ONCE/SINGLE
     Route: 042
     Dates: start: 20170514, end: 20170524
  13. PEGASPARGASE [Suspect]
     Active Substance: PEGASPARGASE
     Dosage: 1900 IU, SINGLE, DAY 43
     Route: 042
     Dates: start: 20170524, end: 20170524

REACTIONS (2)
  - Sepsis [Recovered/Resolved]
  - Vomiting [Recovered/Resolved]

NARRATIVE: CASE EVENT DATE: 20170520
